FAERS Safety Report 20232272 (Version 1)
Quarter: 2021Q4

REPORT INFORMATION
  Report Type: Spontaneous
  Country: DE (occurrence: DE)
  Receive Date: 20211227
  Receipt Date: 20211227
  Transmission Date: 20220303
  Serious: Yes (Other)
  Sender: FDA-Public Use
  Company Number: DE-NOVARTISPH-NVSC2021DE280943

PATIENT
  Age: 5 Year
  Sex: Male
  Weight: 20 kg

DRUGS (4)
  1. OXCARBAZEPINE [Interacting]
     Active Substance: OXCARBAZEPINE
     Indication: Epilepsy
     Dosage: 420 MG, EVERY 0.5 DAY
     Route: 048
     Dates: start: 202105
  2. VALPROATE [Interacting]
     Active Substance: VALPROIC ACID
     Indication: Epilepsy
     Dosage: UNK
     Route: 048
     Dates: start: 202110
  3. LAMOTRIGINE [Interacting]
     Active Substance: LAMOTRIGINE
     Indication: Epilepsy
     Dosage: 125-0-137,  EVERY 0.5 DAY
     Route: 048
  4. HEMLIBRA [Interacting]
     Active Substance: EMICIZUMAB-KXWH
     Indication: Factor VIII deficiency
     Dosage: 60 MG (EVERY 10 DAY)
     Route: 058
     Dates: start: 20180531, end: 20211123

REACTIONS (2)
  - Drug level increased [Unknown]
  - Drug interaction [Unknown]
